FAERS Safety Report 5377037-1 (Version None)
Quarter: 2007Q2

REPORT INFORMATION
  Report Type: 
  Country: None (occurrence: None)
  Receive Date: 20070628
  Receipt Date: 20070628
  Transmission Date: 20071010
  Serious: Yes (Other)
  Sender: FDA-Public Use
  Company Number: None

PATIENT
  Age: 6 Month
  Sex: Female

DRUGS (1)
  1. COPPERTONE WATER BABIES LOTION, SPF 50 [Suspect]
     Dosage: TOP
     Route: 061

REACTIONS (5)
  - ABDOMINAL PAIN [None]
  - ANAPHYLACTIC SHOCK [None]
  - NO REACTION ON PREVIOUS EXPOSURE TO DRUG [None]
  - SWELLING FACE [None]
  - URTICARIA [None]
